FAERS Safety Report 7573346-6 (Version None)
Quarter: 2011Q2

REPORT INFORMATION
  Report Type: 
  Country: None (occurrence: None)
  Receive Date: 20110627
  Receipt Date: 20110616
  Transmission Date: 20111010
  Serious: Yes (Life-Threatening, Hospitalization)
  Sender: FDA-Public Use
  Company Number: JP-CELGENEUS-TAJPN-10-0724

PATIENT
  Sex: Female
  Weight: 42 kg

DRUGS (8)
  1. GEMCITABINE [Suspect]
     Indication: BREAST CANCER METASTATIC
     Route: 065
     Dates: start: 20101001, end: 20101125
  2. OXYGEN [Concomitant]
     Indication: OXYGEN SATURATION DECREASED
     Dosage: 10 LITERS
     Route: 055
     Dates: start: 20101210
  3. PREDNISOLONE [Concomitant]
     Dosage: MILLIGRAM
     Route: 048
     Dates: start: 20100927
  4. MAGMITT [Concomitant]
     Route: 048
     Dates: start: 20100927
  5. HYSRON-H [Concomitant]
     Indication: BREAST CANCER METASTATIC
     Dosage: 800 MILLIGRAM
     Route: 048
     Dates: start: 20100701
  6. ABRAXANE [Suspect]
     Indication: BREAST CANCER METASTATIC
     Dosage: 370 MILLIGRAM
     Route: 065
     Dates: start: 20101207, end: 20101207
  7. LANSOPRAZOLE [Concomitant]
     Route: 048
     Dates: start: 20100927
  8. OXYGEN [Concomitant]
     Dosage: 5 LITERS
     Route: 055
     Dates: start: 20101211

REACTIONS (1)
  - INTERSTITIAL LUNG DISEASE [None]
